FAERS Safety Report 9269772 (Version 4)
Quarter: 2013Q2

REPORT INFORMATION
  Report Type: Report from Study
  Country: CA (occurrence: CA)
  Receive Date: 20130503
  Receipt Date: 20130620
  Transmission Date: 20140414
  Serious: Yes (Hospitalization)
  Sender: FDA-Public Use
  Company Number: CA-BAYER-2013-054004

PATIENT
  Age: 70 Year
  Sex: Male
  Weight: 73.9 kg

DRUGS (13)
  1. REGORAFENIB [Suspect]
     Indication: COLORECTAL CANCER METASTATIC
     Dosage: 160 MG, QD
     Route: 048
     Dates: start: 20130404, end: 20130408
  2. REGORAFENIB [Suspect]
     Indication: COLORECTAL CANCER METASTATIC
     Dosage: 120 MG, QD
     Route: 048
     Dates: start: 20130411, end: 20130423
  3. ELAVIL [Concomitant]
     Indication: INSOMNIA
     Dosage: DAILY DOSE 25 MG
     Route: 048
     Dates: start: 2006, end: 20130522
  4. IMODIUM [Concomitant]
     Indication: DIARRHOEA
     Dosage: 2 MG, PRN
     Route: 048
     Dates: start: 2006
  5. TYLENOL [PARACETAMOL] [Concomitant]
     Indication: PAIN
     Dosage: 500 MG, PRN
     Route: 048
     Dates: start: 2006
  6. DIABETA [Concomitant]
     Indication: DIABETES MELLITUS
     Dosage: DAILY DOSE 5 MG
     Route: 048
     Dates: start: 2006
  7. TECTA [Concomitant]
     Indication: GASTROOESOPHAGEAL REFLUX DISEASE
     Dosage: DAILY DOSE 40 MG
     Route: 048
     Dates: start: 2006, end: 20130522
  8. COVERSYL [Concomitant]
     Indication: HYPERTENSION
     Dosage: DAILY DOSE 4 MG
     Route: 048
     Dates: start: 2006, end: 20130522
  9. SENOKOT [Concomitant]
     Indication: CONSTIPATION
     Dosage: DAILY DOSE 8.6 MG
     Route: 048
     Dates: start: 2006
  10. LIPITOR [Concomitant]
     Indication: BLOOD CHOLESTEROL INCREASED
     Dosage: DAILY DOSE 20 MG
     Route: 048
     Dates: start: 2006, end: 20130522
  11. GLUCOPHAGE [Concomitant]
     Indication: DIABETES MELLITUS
     Dosage: DAILY DOSE 500 MG
     Route: 048
     Dates: start: 2006
  12. ATARAX [Concomitant]
     Indication: PRURITUS
     Dosage: DAILY DOSE 10 MG
     Route: 048
     Dates: start: 20130306
  13. PERCOCET [Concomitant]
     Indication: PAIN
     Dosage: 30 MG, PRN
     Route: 048
     Dates: start: 20130408

REACTIONS (1)
  - Delirium [Recovered/Resolved]
